FAERS Safety Report 8364166-3 (Version None)
Quarter: 2012Q2

REPORT INFORMATION
  Report Type: 
  Country: None (occurrence: None)
  Receive Date: 20120516
  Receipt Date: 20120509
  Transmission Date: 20120825
  Serious: Yes (Death)
  Sender: FDA-Public Use
  Company Number: FR-JNJFOC-20120509342

PATIENT
  Sex: Female

DRUGS (11)
  1. LOXAPINE HCL [Suspect]
     Indication: PRODUCT USED FOR UNKNOWN INDICATION
     Route: 030
     Dates: start: 20100320, end: 20100321
  2. ABILIFY [Suspect]
     Indication: PRODUCT USED FOR UNKNOWN INDICATION
     Route: 048
     Dates: start: 20100319, end: 20100320
  3. CLONAZEPAM [Concomitant]
     Dates: start: 20100203, end: 20100306
  4. ABILIFY [Suspect]
     Route: 048
     Dates: start: 20100203, end: 20100306
  5. LITHIUM CARBONATE [Suspect]
     Indication: PRODUCT USED FOR UNKNOWN INDICATION
     Route: 048
     Dates: start: 20100203, end: 20100306
  6. IMOVANE [Suspect]
     Indication: PRODUCT USED FOR UNKNOWN INDICATION
     Route: 048
     Dates: start: 20100319, end: 20100320
  7. LITHIUM CARBONATE [Suspect]
     Route: 048
     Dates: start: 20100319, end: 20100320
  8. IMOVANE [Suspect]
     Route: 048
     Dates: start: 20100203, end: 20100306
  9. TRIMEPRAZINE TARTRATE [Suspect]
     Route: 048
     Dates: start: 20100319, end: 20100320
  10. HALDOL [Suspect]
     Indication: PRODUCT USED FOR UNKNOWN INDICATION
     Route: 048
     Dates: start: 20100320, end: 20100320
  11. TRIMEPRAZINE TARTRATE [Suspect]
     Indication: PRODUCT USED FOR UNKNOWN INDICATION
     Route: 048
     Dates: start: 20100203, end: 20100306

REACTIONS (2)
  - DELIRIUM [None]
  - DEATH [None]
